FAERS Safety Report 9199973 (Version 2)
Quarter: 2013Q2

REPORT INFORMATION
  Report Type: Report from Study
  Country: US (occurrence: US)
  Receive Date: 20130329
  Receipt Date: 20130416
  Transmission Date: 20140414
  Serious: Yes (Hospitalization)
  Sender: FDA-Public Use
  Company Number: US-GENZYME-CLOF-1002555

PATIENT
  Age: 70 Year
  Sex: Male

DRUGS (27)
  1. CLOLAR [Suspect]
     Indication: BONE MARROW CONDITIONING REGIMEN
     Dosage: 30 MG/M2, QD (DAY -6 THROUGH DAY -2 )
     Route: 042
     Dates: start: 20130119, end: 20130123
  2. THYMOGLOBULIN [Suspect]
     Indication: BONE MARROW CONDITIONING REGIMEN
     Dosage: UNK
     Route: 042
     Dates: end: 20130118
  3. TOTAL LYMPHOID IRRADIATION [Suspect]
     Indication: BONE MARROW CONDITIONING REGIMEN
     Dosage: UNK
     Route: 065
  4. NEORAL [Concomitant]
     Indication: PRODUCT USED FOR UNKNOWN INDICATION
     Dosage: 100 MG, Q12HR
     Route: 048
  5. MYCOPHENOLATE MOFETIL [Concomitant]
     Indication: PRODUCT USED FOR UNKNOWN INDICATION
     Dosage: 1000 MG, BID
     Route: 048
  6. CAPHOSOL [Concomitant]
     Indication: PRODUCT USED FOR UNKNOWN INDICATION
     Dosage: 30 ML, TID
     Route: 048
  7. NIFEDIPINE [Concomitant]
     Indication: PRODUCT USED FOR UNKNOWN INDICATION
     Dosage: 30 MG, QD
     Route: 048
  8. OSELTAMIVIR [Concomitant]
     Indication: PRODUCT USED FOR UNKNOWN INDICATION
     Dosage: 75 MG, QD
     Route: 048
  9. FLUCONAZOLE [Concomitant]
     Indication: PRODUCT USED FOR UNKNOWN INDICATION
     Dosage: 200 MG, QD
     Route: 048
  10. OXYCODONE [Concomitant]
     Indication: BACK PAIN
     Dosage: 10 MG, Q12HR
     Route: 048
  11. OXYCODONE [Concomitant]
     Dosage: 5 MG, UNK (Q6HR)
     Route: 048
  12. GABAPENTIN [Concomitant]
     Indication: PRODUCT USED FOR UNKNOWN INDICATION
     Dosage: 300 MG, Q12HR
     Route: 048
  13. URSODIOL [Concomitant]
     Indication: PRODUCT USED FOR UNKNOWN INDICATION
     Dosage: 300 MG, UNK (EVERY MORNING)
     Route: 048
  14. URSODIOL [Concomitant]
     Dosage: 600 MG, UNK (EVERY EVENING)
     Route: 048
  15. POLYETHYLENE GLYCOL [Concomitant]
     Indication: CONSTIPATION
     Dosage: 17 G, DAILY (PRN)
     Route: 048
  16. LORAZEPAM [Concomitant]
     Indication: ANXIETY
     Dosage: 0.5 MG, PRN
     Route: 048
  17. DOCUSATE SODIUM [Concomitant]
     Indication: CONSTIPATION
     Dosage: 100 MG, PRN (TID)
     Route: 048
  18. PANTOPRAZOLE [Concomitant]
     Indication: PRODUCT USED FOR UNKNOWN INDICATION
     Dosage: 40 MG, QD
     Route: 048
  19. SENNA [Concomitant]
     Indication: CONSTIPATION
     Dosage: 8.6 MG, PRN (BID)
     Route: 048
  20. SENNA [Concomitant]
     Dosage: 1 TABLET, BID
     Route: 048
  21. CYCLOBENZAPRINE [Concomitant]
     Indication: BACK PAIN
     Dosage: 2.5 MG, PRN (BID)
     Route: 048
  22. SULFAMETHOPRIM [Concomitant]
     Indication: PRODUCT USED FOR UNKNOWN INDICATION
     Dosage: 800 MG-160 MG, 3/ WEEK
     Route: 048
  23. MAGNESIUM OXIDE [Concomitant]
     Indication: PRODUCT USED FOR UNKNOWN INDICATION
     Dosage: 400 MG, ONCE
     Route: 048
  24. ACYCLOVIR [Concomitant]
     Indication: PRODUCT USED FOR UNKNOWN INDICATION
     Dosage: 400 MG, TID
     Route: 048
  25. ATOVAQUONE [Concomitant]
     Indication: PRODUCT USED FOR UNKNOWN INDICATION
     Dosage: 1500 MG, QD
     Route: 048
  26. BISACODYL [Concomitant]
     Indication: CONSTIPATION
     Dosage: 10 MG, BID (PRN)
     Route: 048
  27. OXYCONTIN [Concomitant]
     Indication: PRODUCT USED FOR UNKNOWN INDICATION
     Dosage: 10 MG, BID
     Route: 048

REACTIONS (7)
  - Vomiting [Unknown]
  - Blood creatinine increased [Not Recovered/Not Resolved]
  - Decreased appetite [Recovered/Resolved]
  - Decreased appetite [Not Recovered/Not Resolved]
  - Vomiting [Recovered/Resolved]
  - Nausea [Recovered/Resolved]
  - Nausea [Not Recovered/Not Resolved]
